FAERS Safety Report 4287868-7 (Version None)
Quarter: 2004Q1

REPORT INFORMATION
  Report Type: 
  Country: None (occurrence: None)
  Receive Date: 20040209
  Receipt Date: 20031017
  Transmission Date: 20041129
  Serious: No
  Sender: FDA-Public Use
  Company Number: US-GLAXOSMITHKLINE-A0430679A

PATIENT

DRUGS (2)
  1. PAXIL [Suspect]
     Route: 048
  2. ANTIHYPERTENSIVE [Concomitant]

REACTIONS (1)
  - BLOOD PRESSURE DECREASED [None]
